FAERS Safety Report 13963980 (Version 9)
Quarter: 2022Q4

REPORT INFORMATION
  Report Type: Report from Study
  Country: JP (occurrence: JP)
  Receive Date: 20170913
  Receipt Date: 20221007
  Transmission Date: 20230112
  Serious: Yes (Hospitalization)
  Sender: FDA-Public Use
  Company Number: JP-ABBVIE-17K-087-1995756-00

PATIENT
  Age: 75 Year
  Sex: Female
  Weight: 46 kg

DRUGS (4)
  1. CARBIDOPA\LEVODOPA [Suspect]
     Active Substance: CARBIDOPA\LEVODOPA
     Indication: Parkinson^s disease
     Dosage: MD WAS 5 ML, CD WAS 1.2 ML/HOUR MULTIPLIED BY 16 HOURS, ED WAS 0.5 ML/UNIT MULTIPLIED BY 1
     Route: 050
     Dates: start: 20170127, end: 20180127
  2. CARBIDOPA\LEVODOPA [Suspect]
     Active Substance: CARBIDOPA\LEVODOPA
     Dosage: MD WAS 5 ML, CD WAS 1.2 ML/HOUR MULTIPLIED BY 16 HOURS, ED WAS 0.5 ML/UNIT MULTIPLIED BY 1
     Route: 050
     Dates: start: 201801
  3. ZONISAMIDE [Concomitant]
     Active Substance: ZONISAMIDE
     Indication: Parkinson^s disease
     Route: 048
  4. SAFINAMIDE MESYLATE [Concomitant]
     Active Substance: SAFINAMIDE MESYLATE
     Indication: Parkinson^s disease
     Route: 048
     Dates: start: 20200127

REACTIONS (6)
  - Loss of personal independence in daily activities [Not Recovered/Not Resolved]
  - Stoma site haemorrhage [Recovering/Resolving]
  - Wrong technique in device usage process [Unknown]
  - Stoma site rash [Recovering/Resolving]
  - Stoma site irritation [Recovering/Resolving]
  - Parkinson^s disease [Not Recovered/Not Resolved]

NARRATIVE: CASE EVENT DATE: 20170516
